FAERS Safety Report 11813876 (Version 1)
Quarter: 2015Q4

REPORT INFORMATION
  Report Type: Spontaneous
  Country: US (occurrence: None)
  Receive Date: 20151208
  Receipt Date: 20151208
  Transmission Date: 20160305
  Serious: No
  Sender: FDA-Public Use
  Company Number: None

PATIENT
  Age: 73 Year
  Sex: Female

DRUGS (21)
  1. CYANOCOBALAMIN. [Concomitant]
     Active Substance: CYANOCOBALAMIN
  2. THERAGRAN [Concomitant]
     Active Substance: VITAMINS
  3. XOPENEX [Concomitant]
     Active Substance: LEVALBUTEROL HYDROCHLORIDE
  4. BUTRANS [Suspect]
     Active Substance: BUPRENORPHINE
     Dosage: EVERY 7 DAYS
  5. ECOTRIN [Concomitant]
     Active Substance: ASPIRIN
  6. MUCINEX [Concomitant]
     Active Substance: GUAIFENESIN
  7. OMEGA 3 [Concomitant]
     Active Substance: OMEGA-3 FATTY ACIDS
  8. NEURONTIN [Concomitant]
     Active Substance: GABAPENTIN
  9. PROTONIX [Concomitant]
     Active Substance: PANTOPRAZOLE SODIUM
  10. PYRIDIUM [Concomitant]
     Active Substance: PHENAZOPYRIDINE
  11. PHENERGAN [Concomitant]
     Active Substance: PROMETHAZINE HYDROCHLORIDE
  12. CAPOTEN [Concomitant]
     Active Substance: CAPTOPRIL
  13. COREG [Concomitant]
     Active Substance: CARVEDILOL
  14. OXYCODONE [Suspect]
     Active Substance: OXYCODONE
     Indication: PAIN
     Dosage: AS NEEDE FOR PAIN  CHRONIC
     Route: 048
  15. WELLBUTRIN [Concomitant]
     Active Substance: BUPROPION HYDROCHLORIDE
  16. ALLEGRA [Concomitant]
     Active Substance: FEXOFENADINE HYDROCHLORIDE
  17. C [Concomitant]
  18. MEDROL [Concomitant]
     Active Substance: METHYLPREDNISOLONE
  19. SPIRIVA [Concomitant]
     Active Substance: TIOTROPIUM BROMIDE MONOHYDRATE
  20. AMBIEN [Suspect]
     Active Substance: ZOLPIDEM TARTRATE
     Indication: INSOMNIA
     Dosage: EVERY EVENING AS NEEDE FOR SLEEP
     Route: 048
  21. MAG OX [Concomitant]
     Active Substance: MAGNESIUM OXIDE

REACTIONS (2)
  - Acute respiratory failure [None]
  - Encephalopathy [None]

NARRATIVE: CASE EVENT DATE: 20150322
